FAERS Safety Report 20373447 (Version 1)
Quarter: 2022Q1

REPORT INFORMATION
  Report Type: Report from Study
  Country: SA (occurrence: None)
  Receive Date: 20220125
  Receipt Date: 20220125
  Transmission Date: 20220423
  Serious: Yes (Other)
  Sender: FDA-Public Use
  Company Number: SA-Unichem Pharmaceuticals (USA) Inc-UCM202201-000035

PATIENT

DRUGS (2)
  1. HYDROCHLOROTHIAZIDE [Suspect]
     Active Substance: HYDROCHLOROTHIAZIDE
     Indication: Product used for unknown indication
     Dosage: UNKNOWN
  2. LICORICE [Suspect]
     Active Substance: LICORICE
     Indication: Product used for unknown indication
     Dosage: UNKNOWN

REACTIONS (2)
  - Drug interaction [Unknown]
  - Hypokalaemia [Unknown]
